FAERS Safety Report 11857035 (Version 1)
Quarter: 2015Q4

REPORT INFORMATION
  Report Type: Spontaneous
  Country: ES (occurrence: ES)
  Receive Date: 20151221
  Receipt Date: 20151221
  Transmission Date: 20160305
  Serious: Yes (Disabling)
  Sender: FDA-Public Use
  Company Number: ES-PFIZER INC-2015448596

PATIENT
  Age: 55 Year
  Sex: Female

DRUGS (1)
  1. BESITRAN [Suspect]
     Active Substance: SERTRALINE HYDROCHLORIDE
     Dosage: 100 MG, UNK
     Dates: start: 2005

REACTIONS (3)
  - Fibromyalgia [Unknown]
  - Major depression [Unknown]
  - Condition aggravated [Unknown]

NARRATIVE: CASE EVENT DATE: 2006
